FAERS Safety Report 4563336-X (Version None)
Quarter: 2005Q1

REPORT INFORMATION
  Report Type: 
  Country: None (occurrence: None)
  Receive Date: 20050128
  Receipt Date: 20040128
  Transmission Date: 20050727
  Serious: No
  Sender: FDA-Public Use
  Company Number: US-GLAXOSMITHKLINE-A0495339A

PATIENT
  Age: 80 Year
  Sex: Female

DRUGS (3)
  1. BUPROPION HYDROCHLORIDE [Suspect]
     Indication: DEPRESSION
     Dosage: 225MG UNKNOWN
     Route: 048
     Dates: start: 20031101
  2. LORAZEPAM [Concomitant]
  3. UNKNOWN SLEEPING PILL [Concomitant]

REACTIONS (2)
  - DEPRESSION [None]
  - WEIGHT DECREASED [None]
